FAERS Safety Report 6761922-X (Version None)
Quarter: 2010Q2

REPORT INFORMATION
  Report Type: 
  Country: None (occurrence: None)
  Receive Date: 20100609
  Receipt Date: 20100602
  Transmission Date: 20101027
  Serious: Yes (Other)
  Sender: FDA-Public Use
  Company Number: CA-ASTRAZENECA-2010SE25539

PATIENT
  Age: 66 Year
  Sex: Female
  Weight: 65.8 kg

DRUGS (3)
  1. PULMICORT [Suspect]
     Route: 055
  2. GARLIC [Concomitant]
     Route: 048
  3. MULTIVITAMINE [Concomitant]
     Route: 048

REACTIONS (12)
  - ACTIVITIES OF DAILY LIVING IMPAIRED [None]
  - CHEST DISCOMFORT [None]
  - CHEST PAIN [None]
  - CONDITION AGGRAVATED [None]
  - COSTOCHONDRITIS [None]
  - COUGH [None]
  - DYSPNOEA [None]
  - HYPOVENTILATION [None]
  - MALAISE [None]
  - MUSCLE TIGHTNESS [None]
  - MUSCULOSKELETAL CHEST PAIN [None]
  - PALPITATIONS [None]
